FAERS Safety Report 7131451-2 (Version None)
Quarter: 2010Q4

REPORT INFORMATION
  Report Type: 
  Country: None (occurrence: None)
  Receive Date: 20101201
  Receipt Date: 20101126
  Transmission Date: 20110411
  Serious: Yes (Other)
  Sender: FDA-Public Use
  Company Number: JP-PFIZER INC-2010138900

PATIENT
  Age: 57 Year
  Sex: Male

DRUGS (1)
  1. CHANTIX [Suspect]
     Dosage: 2 MG/DAY
     Route: 048
     Dates: start: 20101016

REACTIONS (2)
  - INTRAOCULAR PRESSURE INCREASED [None]
  - VISION BLURRED [None]
